FAERS Safety Report 21297944 (Version 1)
Quarter: 2022Q3

REPORT INFORMATION
  Report Type: Spontaneous
  Country: JP (occurrence: JP)
  Receive Date: 20220906
  Receipt Date: 20220906
  Transmission Date: 20221027
  Serious: Yes (Hospitalization, Other)
  Sender: FDA-Public Use
  Company Number: None

PATIENT
  Age: 64 Year
  Sex: Male

DRUGS (2)
  1. CAPECITABINE [Suspect]
     Active Substance: CAPECITABINE
     Indication: Rectal cancer
     Route: 048
  2. OXALIPLATIN [Concomitant]
     Active Substance: OXALIPLATIN
     Indication: Rectal cancer
     Route: 065

REACTIONS (7)
  - Acute oesophageal mucosal lesion [Unknown]
  - Shock haemorrhagic [Unknown]
  - Gastric ulcer haemorrhage [Unknown]
  - Renal impairment [Recovering/Resolving]
  - Gastrointestinal disorder [Unknown]
  - Gastric ulcer [Unknown]
  - Febrile neutropenia [Unknown]
